FAERS Safety Report 7547498-8 (Version None)
Quarter: 2011Q2

REPORT INFORMATION
  Report Type: 
  Country: None (occurrence: None)
  Receive Date: 20110614
  Receipt Date: 20110607
  Transmission Date: 20111010
  Serious: No
  Sender: FDA-Public Use
  Company Number: US-PFIZER INC-2011092202

PATIENT
  Sex: Male
  Weight: 101 kg

DRUGS (7)
  1. CODEINE AND GUAIFENESIN [Concomitant]
     Dosage: UNK
     Dates: start: 20110421
  2. CHANTIX [Suspect]
     Indication: SMOKING CESSATION THERAPY
     Dosage: 0.5 MG, 1X/DAY
     Route: 048
     Dates: start: 20110422, end: 20110401
  3. CHANTIX [Suspect]
     Dosage: 1 MG, 2X/DAY
     Route: 048
     Dates: start: 20110101, end: 20110101
  4. ROBITUSSIN COUGH + COLD CF [Concomitant]
     Indication: COUGH
     Dosage: UNK
  5. CODEINE [Concomitant]
     Dosage: UNK
  6. ZITHROMAX [Concomitant]
     Dosage: UNK, 2 PACKS
     Dates: start: 20110421
  7. CHANTIX [Suspect]
     Dosage: 0.5 MG, 2X/DAY
     Dates: start: 20110401, end: 20110429

REACTIONS (1)
  - HYPOAESTHESIA ORAL [None]
